FAERS Safety Report 25484520 (Version 1)
Quarter: 2025Q2

REPORT INFORMATION
  Report Type: Spontaneous
  Country: US (occurrence: None)
  Receive Date: 20250627
  Receipt Date: 20250627
  Transmission Date: 20250716
  Serious: No
  Sender: FDA-CTU
  Company Number: None

PATIENT
  Age: 76 Year
  Sex: Male
  Weight: 96 kg

DRUGS (2)
  1. DEXAMETHASONE [Suspect]
     Active Substance: DEXAMETHASONE
     Dates: start: 20250401, end: 20250422
  2. LENALIDOMIDE [Suspect]
     Active Substance: LENALIDOMIDE
     Dates: end: 20250421

REACTIONS (6)
  - Syncope [None]
  - Head injury [None]
  - Cerebral small vessel ischaemic disease [None]
  - Atelectasis [None]
  - Pulmonary fibrosis [None]
  - Atrial fibrillation [None]

NARRATIVE: CASE EVENT DATE: 20250424
